FAERS Safety Report 6257931-X (Version None)
Quarter: 2009Q3

REPORT INFORMATION
  Report Type: 
  Country: None (occurrence: None)
  Receive Date: 20090707
  Receipt Date: 20090624
  Transmission Date: 20100115
  Serious: Yes (Hospitalization, Other)
  Sender: FDA-Public Use
  Company Number: GB-PFIZER INC-2009178889

PATIENT

DRUGS (4)
  1. PHENYTOIN SODIUM AND PHENYTOIN [Suspect]
     Indication: GRAND MAL CONVULSION
     Dosage: 600 MG, DAILY
  2. VALPROIC ACID [Interacting]
     Indication: GRAND MAL CONVULSION
     Dosage: 1000 MG, 1 DAY
  3. CLONAZEPAM [Concomitant]
     Indication: GRAND MAL CONVULSION
     Dosage: UNK MG, UNK
  4. VALPROIC ACID [Concomitant]
     Dosage: 1 MG,  1 DAY

REACTIONS (5)
  - DRUG INTERACTION [None]
  - DRUG LEVEL INCREASED [None]
  - DRUG TOXICITY [None]
  - MOTOR NEURONE DISEASE [None]
  - NEUROTOXICITY [None]
